FAERS Safety Report 13228126 (Version 3)
Quarter: 2017Q2

REPORT INFORMATION
  Report Type: Spontaneous
  Country: US (occurrence: US)
  Receive Date: 20170213
  Receipt Date: 20170613
  Transmission Date: 20170830
  Serious: Yes (Death, Hospitalization)
  Sender: FDA-Public Use
  Company Number: US-VIFOR (INTERNATIONAL) INC.-VIT-2017-01467

PATIENT
  Age: 89 Year
  Sex: Female

DRUGS (6)
  1. FUROSEMIDE. [Concomitant]
     Active Substance: FUROSEMIDE
  2. DIAZOXIDE [Concomitant]
     Active Substance: DIAZOXIDE
  3. RENAGEL [Concomitant]
     Active Substance: SEVELAMER HYDROCHLORIDE
  4. VELTASSA [Suspect]
     Active Substance: PATIROMER
     Indication: HYPERKALAEMIA
     Route: 048
     Dates: start: 201611, end: 201702
  5. CALCITRIOL. [Concomitant]
     Active Substance: CALCITRIOL
  6. ACETYLSALICYLIC ACID [Concomitant]
     Active Substance: ASPIRIN

REACTIONS (3)
  - End stage renal disease [Fatal]
  - Renal failure [Unknown]
  - Chest pain [Unknown]

NARRATIVE: CASE EVENT DATE: 201701
